FAERS Safety Report 4576999-X (Version None)
Quarter: 2005Q1

REPORT INFORMATION
  Report Type: 
  Country: None (occurrence: None)
  Receive Date: 20050127
  Receipt Date: 20050127
  Transmission Date: 20050727
  Serious: Yes (Hospitalization)
  Sender: FDA-Public Use
  Company Number: None

PATIENT
  Age: 65 Year
  Sex: Male
  Weight: 86.637 kg

DRUGS (8)
  1. DOXORUBICIN [Suspect]
     Indication: PROSTATE CANCER
     Dosage: 10MG/M2 IV Q WK X 3-Q4 WEEKS
     Route: 042
     Dates: start: 20040818, end: 20041221
  2. TAXOTERE [Suspect]
     Indication: PROSTATE CANCER
     Dosage: 35 MG/M2 IV Q WK X 3 - Q 4 WEEKS
     Route: 042
     Dates: start: 20040818, end: 20041221
  3. LUPRON [Concomitant]
  4. ZOMETA [Concomitant]
  5. ARANESP [Concomitant]
  6. SENOKOT [Concomitant]
  7. COLACE [Concomitant]
  8. METHADONE [Concomitant]

REACTIONS (2)
  - ASTHENIA [None]
  - PLEURAL EFFUSION [None]
